FAERS Safety Report 11031635 (Version 1)
Quarter: 2015Q2

REPORT INFORMATION
  Report Type: Spontaneous
  Country: US (occurrence: None)
  Receive Date: 20150414
  Receipt Date: 20150414
  Transmission Date: 20150821
  Serious: Yes (Life-Threatening, Hospitalization, Disabling, Other)
  Sender: FDA-Public Use
  Company Number: None

PATIENT
  Age: 72 Year
  Sex: Male
  Weight: 83.01 kg

DRUGS (7)
  1. MGATORVASTATIN-40 [Concomitant]
  2. MGBENAZEPRIL [Concomitant]
  3. ACTOS [Suspect]
     Active Substance: PIOGLITAZONE HYDROCHLORIDE
     Indication: DIABETES MELLITUS
     Dosage: 1 A DAY
     Route: 048
     Dates: start: 20090430, end: 20110620
  4. TYLENOL [Concomitant]
     Active Substance: ACETAMINOPHEN
  5. ALFUZOSIN-10 [Concomitant]
  6. MULTIVITAMINS [Concomitant]
     Active Substance: VITAMINS
  7. METFORMIN [Concomitant]
     Active Substance: METFORMIN HYDROCHLORIDE

REACTIONS (4)
  - Vertigo [None]
  - Cholangiocarcinoma [None]
  - Presyncope [None]
  - Nausea [None]

NARRATIVE: CASE EVENT DATE: 20101020
